FAERS Safety Report 17601798 (Version 1)
Quarter: 2020Q1

REPORT INFORMATION
  Report Type: Spontaneous
  Country: FR (occurrence: FR)
  Receive Date: 20200331
  Receipt Date: 20200331
  Transmission Date: 20200409
  Serious: Yes (Other)
  Sender: FDA-Public Use
  Company Number: FR-US-PROVELL PHARMACEUTICALS LLC-E2B_90076022

PATIENT
  Age: 93 Year
  Sex: Female
  Weight: 50 kg

DRUGS (1)
  1. LEVOTHYROX 75 [Suspect]
     Active Substance: LEVOTHYROXINE
     Indication: PRODUCT DOSE OMISSION
     Route: 048

REACTIONS (6)
  - Product prescribing issue [Recovered/Resolved]
  - Product prescribing error [Recovered/Resolved]
  - Product dose omission [Recovered/Resolved]
  - Hypothyroidism [Recovered/Resolved]
  - Asthenia [Recovered/Resolved]
  - Transcription medication error [Recovered/Resolved]

NARRATIVE: CASE EVENT DATE: 20190417
